FAERS Safety Report 5928288-6 (Version None)
Quarter: 2008Q4

REPORT INFORMATION
  Report Type: 
  Country: None (occurrence: None)
  Receive Date: 20081023
  Receipt Date: 20080926
  Transmission Date: 20090506
  Serious: Yes (Other)
  Sender: FDA-Public Use
  Company Number: PHHY2008CN21816

PATIENT
  Age: 20 Year
  Sex: Male

DRUGS (2)
  1. SEBIVO [Suspect]
     Indication: HEPATITIS B
     Dosage: UNK
     Route: 048
     Dates: start: 20080301
  2. INTERFERON [Concomitant]

REACTIONS (11)
  - BLOOD CREATINE PHOSPHOKINASE INCREASED [None]
  - BLOOD LACTATE DEHYDROGENASE INCREASED [None]
  - CARDIOMEGALY [None]
  - DECREASED APPETITE [None]
  - JOINT SWELLING [None]
  - LIP SWELLING [None]
  - MYALGIA [None]
  - OEDEMA [None]
  - OEDEMA PERIPHERAL [None]
  - PALPITATIONS [None]
  - PROTEIN URINE [None]
